FAERS Safety Report 6269738-8 (Version None)
Quarter: 2009Q3

REPORT INFORMATION
  Report Type: 
  Country: None (occurrence: None)
  Receive Date: 20090716
  Receipt Date: 20090629
  Transmission Date: 20100115
  Serious: Yes (Life-Threatening, Hospitalization)
  Sender: FDA-Public Use
  Company Number: FR-ASTRAZENECA-2009SE03639

PATIENT
  Age: 7664 Day
  Sex: Female

DRUGS (9)
  1. MOPRAL [Suspect]
     Route: 048
     Dates: start: 20090407, end: 20090501
  2. MALOCIDE [Suspect]
     Indication: EYE INFECTION TOXOPLASMAL
     Route: 048
     Dates: start: 20090403, end: 20090501
  3. ADIAZINE [Suspect]
     Indication: EYE INFECTION TOXOPLASMAL
     Route: 048
     Dates: start: 20090403, end: 20090501
  4. LEDERFOLDINE [Suspect]
     Indication: EYE INFECTION TOXOPLASMAL
     Route: 048
     Dates: start: 20090403, end: 20090501
  5. IXPRIM [Suspect]
     Indication: NECK PAIN
     Route: 048
     Dates: start: 20090417, end: 20090426
  6. CARDIOCALM [Suspect]
     Indication: NECK PAIN
     Route: 048
     Dates: start: 20090417, end: 20090501
  7. MAGNE B6 [Suspect]
     Indication: NECK PAIN
     Route: 048
     Dates: start: 20090417, end: 20090501
  8. CORTANCYL [Concomitant]
     Route: 048
     Dates: start: 20090407
  9. HOLGYENE [Concomitant]
     Indication: ORAL CONTRACEPTION
     Route: 048
     Dates: start: 20081001

REACTIONS (2)
  - CYTOLYTIC HEPATITIS [None]
  - DRUG RASH WITH EOSINOPHILIA AND SYSTEMIC SYMPTOMS [None]
